FAERS Safety Report 4821652-8 (Version None)
Quarter: 2005Q4

REPORT INFORMATION
  Report Type: 
  Country: None (occurrence: None)
  Receive Date: 20051107
  Receipt Date: 20051031
  Transmission Date: 20060501
  Serious: Yes (Life-Threatening)
  Sender: FDA-Public Use
  Company Number: 2005AP05633

PATIENT
  Age: 19 Year
  Sex: Male

DRUGS (5)
  1. FOSCAVIR [Suspect]
     Route: 042
  2. ZOVIRAX [Concomitant]
  3. FUNGIZONE [Concomitant]
  4. ITRIZOLE [Concomitant]
  5. MEROPEN [Concomitant]

REACTIONS (1)
  - LEUKOENCEPHALOPATHY [None]
